FAERS Safety Report 8956722 (Version 1)
Quarter: 2012Q4

REPORT INFORMATION
  Report Type: 
  Country: US (occurrence: US)
  Receive Date: 20121210
  Receipt Date: 20121210
  Transmission Date: 20130627
  Serious: No
  Sender: FDA-Public Use
  Company Number: US-PFIZER INC-2012309436

PATIENT
  Age: 57 Year
  Sex: Female
  Weight: 126 kg

DRUGS (8)
  1. ADVIL [Suspect]
     Indication: ARTHRITIS
     Dosage: two times a day, two in the morning and one at night
     Dates: start: 2010
  2. ACETYLSALICYLIC ACID [Suspect]
     Indication: ARTHRITIS
     Dosage: two times a day (two in the morning and one at night)
  3. ALEVE [Suspect]
     Indication: ARTHRITIS
     Dosage: two times a day (two in the morning and one at night)
     Dates: start: 2012
  4. GABAPENTIN [Concomitant]
     Indication: EPILEPSY
     Dosage: 400 mg, 2x/day(two and half in the morning and two and half evening)
  5. GABAPENTIN [Concomitant]
     Indication: PANIC ATTACKS
  6. BENAZEPRIL [Concomitant]
     Indication: BLOOD PRESSURE HIGH
     Dosage: 20 mg, daily
  7. NEXIUM [Concomitant]
     Indication: HEARTBURN
     Dosage: 40 mg, daily
  8. NEXIUM [Concomitant]
     Indication: ACID REFLUX (ESOPHAGEAL)

REACTIONS (1)
  - Drug ineffective [Unknown]
